FAERS Safety Report 23777310 (Version 1)
Quarter: 2024Q2

REPORT INFORMATION
  Report Type: Other
  Country: US (occurrence: None)
  Receive Date: 20240424
  Receipt Date: 20240424
  Transmission Date: 20240716
  Serious: Yes (Life-Threatening, Other)
  Sender: FDA-Public Use
  Company Number: US-ROCHE-3549134

PATIENT

DRUGS (2)
  1. ATEZOLIZUMAB [Suspect]
     Active Substance: ATEZOLIZUMAB
     Indication: Adenocarcinoma
     Route: 042
  2. ATEZOLIZUMAB [Suspect]
     Active Substance: ATEZOLIZUMAB
     Dosage: ON DAY 1 OF EACH 21-DAY CYCLE FOR 8 DOSES
     Route: 042

REACTIONS (9)
  - Hypertensive crisis [Unknown]
  - Pancreatitis [Unknown]
  - Fatigue [Unknown]
  - Nausea [Unknown]
  - Dehydration [Unknown]
  - Dyspnoea [Unknown]
  - Myalgia [Unknown]
  - Oral pain [Unknown]
  - Blood thyroid stimulating hormone increased [Unknown]
